FAERS Safety Report 10224131 (Version 4)
Quarter: 2014Q3

REPORT INFORMATION
  Report Type: Spontaneous
  Country: JP (occurrence: JP)
  Receive Date: 20140609
  Receipt Date: 20140822
  Transmission Date: 20150326
  Serious: Yes (Life-Threatening, Other)
  Sender: FDA-Public Use
  Company Number: PHHY2014JP069679

PATIENT
  Age: 64 Year
  Sex: Male

DRUGS (3)
  1. TS-1 [Concomitant]
     Active Substance: GIMERACIL\OTERACIL POTASSIUM\TEGAFUR
     Route: 048
  2. VOLTAREN [Suspect]
     Active Substance: DICLOFENAC SODIUM
     Indication: CANCER PAIN
     Dosage: 75 MG, DAILY
     Route: 048
     Dates: start: 20131118, end: 20131226
  3. VANCOMYCIN [Suspect]
     Active Substance: VANCOMYCIN
     Route: 048

REACTIONS (6)
  - Small intestinal perforation [Recovered/Resolved]
  - Diarrhoea [Unknown]
  - Intestinal ulcer [Unknown]
  - Abdominal pain [Recovered/Resolved]
  - Abdominal abscess [Unknown]
  - Drug ineffective [Unknown]

NARRATIVE: CASE EVENT DATE: 20131226
